FAERS Safety Report 11346663 (Version 1)
Quarter: 2015Q3

REPORT INFORMATION
  Report Type: Spontaneous
  Country: US (occurrence: US)
  Receive Date: 20150803
  Receipt Date: 20150803
  Transmission Date: 20151125
  Serious: No
  Sender: FDA-Public Use
  Company Number: US-ELI_LILLY_AND_COMPANY-US201011001463

PATIENT
  Age: 9 Year
  Sex: Male

DRUGS (1)
  1. ZYPREXA [Suspect]
     Active Substance: OLANZAPINE
     Indication: SOMNAMBULISM
     Dosage: 2.5 MG, DAILY (1/D)
     Dates: start: 20101011

REACTIONS (5)
  - Off label use [Not Recovered/Not Resolved]
  - Dysphagia [Unknown]
  - Agitation [Unknown]
  - Retching [Unknown]
  - Initial insomnia [Unknown]

NARRATIVE: CASE EVENT DATE: 20101011
